FAERS Safety Report 17191492 (Version 7)
Quarter: 2021Q2

REPORT INFORMATION
  Report Type: Spontaneous
  Country: US (occurrence: US)
  Receive Date: 20191223
  Receipt Date: 20210429
  Transmission Date: 20210716
  Serious: Yes (Other)
  Sender: FDA-Public Use
  Company Number: US-PFIZER INC-2019550119

PATIENT
  Age: 75 Year
  Sex: Male
  Weight: 106 kg

DRUGS (1)
  1. LYRICA [Suspect]
     Active Substance: PREGABALIN
     Indication: BURNING SENSATION
     Dosage: 300 MG, 2X/DAY
     Dates: start: 2019

REACTIONS (6)
  - Hypoacusis [Unknown]
  - Tongue disorder [Unknown]
  - Aphasia [Unknown]
  - Memory impairment [Unknown]
  - Visual impairment [Unknown]
  - Alopecia [Unknown]
